FAERS Safety Report 12539390 (Version 1)
Quarter: 2016Q3

REPORT INFORMATION
  Report Type: Report from Study
  Country: JP (occurrence: JP)
  Receive Date: 20160708
  Receipt Date: 20160708
  Transmission Date: 20161109
  Serious: Yes (Hospitalization)
  Sender: FDA-Public Use
  Company Number: JP-SA-2016SA123108

PATIENT
  Age: 70 Year
  Sex: Male
  Weight: 52.1 kg

DRUGS (9)
  1. MAGMITT [Concomitant]
     Active Substance: MAGNESIUM OXIDE
     Indication: UNEVALUABLE EVENT
     Dates: end: 20140909
  2. PLAVIX [Suspect]
     Active Substance: CLOPIDOGREL BISULFATE
     Indication: ARTERIAL OCCLUSIVE DISEASE
     Route: 065
     Dates: start: 20130130, end: 20140820
  3. SYMBICORT [Concomitant]
     Active Substance: BUDESONIDE\FORMOTEROL FUMARATE DIHYDRATE
     Dates: start: 20130918, end: 20130925
  4. ARTIST [Concomitant]
     Active Substance: CARVEDILOL
     Indication: UNEVALUABLE EVENT
     Dates: end: 20140909
  5. AMLODIPINE [Concomitant]
     Active Substance: AMLODIPINE BESYLATE
     Indication: UNEVALUABLE EVENT
     Dates: end: 20140909
  6. FLOMOX [Concomitant]
     Active Substance: CEFCAPENE PIVOXIL HYDROCHLORIDE HYDRATE
     Dates: start: 20130918, end: 20130925
  7. PLETAAL [Concomitant]
     Active Substance: CILOSTAZOL
     Indication: UNEVALUABLE EVENT
     Dates: start: 20130104, end: 20130129
  8. GASTER [Concomitant]
     Active Substance: FAMOTIDINE
     Dates: end: 20140909
  9. THEO-DUR [Concomitant]
     Active Substance: THEOPHYLLINE ANHYDROUS
     Dosage: DRY SYRUP
     Dates: start: 20130918, end: 20130925

REACTIONS (1)
  - Large intestine polyp [Recovering/Resolving]

NARRATIVE: CASE EVENT DATE: 20131106
